FAERS Safety Report 6980476-6 (Version None)
Quarter: 2010Q3

REPORT INFORMATION
  Report Type: 
  Country: None (occurrence: None)
  Receive Date: 20100909
  Receipt Date: 20100826
  Transmission Date: 20110219
  Serious: Yes (Hospitalization)
  Sender: FDA-Public Use
  Company Number: DSM-2010-01191

PATIENT
  Age: 80 Year
  Sex: Female

DRUGS (1)
  1. VOCADO (OLMESARTAN MEDOXOMIL, AMLODIPINE BESILATE) (TABLET) (OLMESARTA [Suspect]
     Indication: HYPERTENSION
     Dosage: 5/20 MG (1 IN 1 D), ORAL
     Route: 048
     Dates: start: 20070101, end: 20100607

REACTIONS (1)
  - PANCREATITIS ACUTE [None]
